FAERS Safety Report 4362135-1 (Version None)
Quarter: 2004Q2

REPORT INFORMATION
  Report Type: 
  Country: None (occurrence: None)
  Receive Date: 20040517
  Receipt Date: 20040429
  Transmission Date: 20050107
  Serious: Yes (Hospitalization, Other)
  Sender: FDA-Public Use
  Company Number: 236388

PATIENT
  Sex: Female
  Weight: 4.2 kg

DRUGS (13)
  1. NOVORAPID PENFIL [Suspect]
     Indication: DIABETES MELLITUS
     Dosage: 48 U, QD, INTRAUTERINE
     Route: 064
     Dates: start: 20031002
  2. INSULATARD HM PENFILL (INSULIN HUMAN) [Concomitant]
  3. MATERNA 1.60 (DOCUSATE SODIUM, MINERALS NOS, VITAMINS NOS) [Concomitant]
  4. LIDOCAINE [Concomitant]
  5. MARCAINE [Concomitant]
  6. DIAZEPAM [Concomitant]
  7. FENTANYL [Concomitant]
  8. KETALAR [Concomitant]
  9. CALCIUM GLUCONATE [Concomitant]
  10. AUGMENTIN [Concomitant]
  11. KONOKION    (PHYTOMENADIONE) [Concomitant]
  12. AMIKACIN [Concomitant]
  13. NORMAL HUMAN PLASMA [Concomitant]

REACTIONS (6)
  - APGAR SCORE LOW [None]
  - BLOOD PH DECREASED [None]
  - CAESAREAN SECTION [None]
  - DRUG EXPOSURE DURING PREGNANCY [None]
  - HYPOGLYCAEMIA NEONATAL [None]
  - NEONATAL DISORDER [None]
